FAERS Safety Report 9127114 (Version 2)
Quarter: 2013Q1

REPORT INFORMATION
  Report Type: Spontaneous
  Country: CA (occurrence: CA)
  Receive Date: 20130228
  Receipt Date: 20130311
  Transmission Date: 20140127
  Serious: Yes (Hospitalization, Other)
  Sender: FDA-Public Use
  Company Number: PHHY2013CA018907

PATIENT
  Sex: Male

DRUGS (8)
  1. GLEEVEC [Suspect]
     Indication: CHRONIC MYELOID LEUKAEMIA
     Dosage: 400 MG/DAY
     Route: 048
     Dates: end: 201212
  2. FUROSEMIDE [Concomitant]
     Dosage: 20 MG, UNK
  3. FLONASE [Concomitant]
     Dosage: UNK UKN, UNK
  4. REPAGLINIDE [Concomitant]
     Dosage: 0.5 MG, TID
  5. FINASTERIDE [Concomitant]
     Dosage: 0.5 MG, QD
  6. PANTOPRAZOLE [Concomitant]
     Dosage: 40 MG/DAY
  7. TAMSULOSIN [Concomitant]
     Dosage: 0.4 MG, UNK
  8. VITAMIN D [Concomitant]
     Dosage: 2000 IU, QD

REACTIONS (5)
  - Fall [Unknown]
  - Pneumothorax [Unknown]
  - Pleural effusion [Unknown]
  - Pericardial effusion [Unknown]
  - Drug intolerance [Unknown]
